FAERS Safety Report 9182102 (Version 1)
Quarter: 2012Q4

REPORT INFORMATION
  Report Type: 
  Country: MX (occurrence: MX)
  Receive Date: 20121030
  Receipt Date: 20121030
  Transmission Date: 20130627
  Serious: Yes (Other)
  Sender: FDA-Public Use
  Company Number: PHHY2012MX095738

PATIENT
  Sex: Female

DRUGS (9)
  1. ZELMAC [Suspect]
     Indication: IRRITABLE BOWEL SYNDROME
     Dosage: 2 DF, daily
     Route: 048
     Dates: start: 201209
  2. BACLOFENO [Concomitant]
     Indication: HYPOTONIA
     Dosage: 2 DF, UNK
  3. GABAPENTINE [Concomitant]
     Indication: NEURALGIA
     Dosage: 3 DF, daily
  4. PAPAMAX [Concomitant]
     Dosage: 1 DF, UNK
  5. ADEPSIQUE [Concomitant]
     Indication: SLEEP DISORDER
  6. CALCORT [Concomitant]
     Indication: NEOPLASM MALIGNANT
     Route: 048
  7. SERTRALINE [Concomitant]
     Indication: DEPRESSION
  8. CARET [Concomitant]
     Indication: THYROID DISORDER
     Dosage: 1 DF, daily
  9. OMEPRAZOLE [Concomitant]
     Indication: GASTRITIS
     Dosage: 1 DF, daily

REACTIONS (1)
  - Multiple sclerosis [Not Recovered/Not Resolved]
